FAERS Safety Report 4412779-3 (Version None)
Quarter: 2004Q3

REPORT INFORMATION
  Report Type: 
  Country: None (occurrence: None)
  Receive Date: 20040730
  Receipt Date: 20040730
  Transmission Date: 20050211
  Serious: No
  Sender: FDA-Public Use
  Company Number: None

PATIENT
  Age: 84 Year
  Sex: Male
  Weight: 53.2 kg

DRUGS (10)
  1. MORPHINE [Suspect]
     Indication: ABDOMINAL PAIN
     Dosage: 10 MG SUBCUT
     Route: 058
     Dates: end: 20040618
  2. HYDROCORTISONE [Concomitant]
  3. LISINOPRIL [Concomitant]
  4. TEMAZEPAM [Concomitant]
  5. CHLORPHENIRAMINE MALEATE [Concomitant]
  6. CLOPIDOGREL BISULFATE [Concomitant]
  7. GUAIFENESIN [Concomitant]
  8. RANITIDINE HCL [Concomitant]
  9. ACETAMINOPHEN [Concomitant]
  10. CALCIUM/VITAMIN D [Concomitant]

REACTIONS (2)
  - BRADYCARDIA [None]
  - HYPOTENSION [None]
